FAERS Safety Report 5494988-8 (Version None)
Quarter: 2007Q4

REPORT INFORMATION
  Report Type: 
  Country: None (occurrence: None)
  Receive Date: 20071022
  Receipt Date: 20071012
  Transmission Date: 20080405
  Serious: Yes (Hospitalization)
  Sender: FDA-Public Use
  Company Number: TPG2007A00630

PATIENT
  Age: 59 Year
  Sex: Female

DRUGS (7)
  1. ACTOS [Suspect]
     Indication: DIABETES MELLITUS
     Dosage: 30 MG (30 MG, 1 -0-0 TABLET PER DAY); PER ORAL
     Route: 048
     Dates: start: 20020101, end: 20061201
  2. BISOPROLOL FUMARATE [Concomitant]
  3. ENALAPRIL MALEATE [Concomitant]
  4. ACETYLSALICYLIC ACID SRT [Concomitant]
  5. AMLODIPINE [Concomitant]
  6. PROTAPHANE (INSULIN INJECTION, ISOPHANE) [Concomitant]
  7. NOVORAPID (INSULIN ASPART) [Concomitant]

REACTIONS (5)
  - ANKLE FRACTURE [None]
  - FALL [None]
  - IMPAIRED HEALING [None]
  - OSTEOPOROSIS [None]
  - RADIUS FRACTURE [None]
